FAERS Safety Report 17165870 (Version 1)
Quarter: 2019Q4

REPORT INFORMATION
  Report Type: Other
  Country: PT (occurrence: PT)
  Receive Date: 20191217
  Receipt Date: 20191217
  Transmission Date: 20200122
  Serious: Yes (Death)
  Sender: FDA-Public Use
  Company Number: PT-ALSI-201900509

PATIENT
  Age: 16 Month
  Sex: Female

DRUGS (1)
  1. OXYGEN. [Suspect]
     Active Substance: OXYGEN
     Indication: PNEUMONIA
     Route: 055

REACTIONS (2)
  - Air embolism [Fatal]
  - Incorrect route of product administration [Fatal]
